FAERS Safety Report 26199757 (Version 1)
Quarter: 2025Q4

REPORT INFORMATION
  Report Type: Spontaneous
  Country: JP (occurrence: JP)
  Receive Date: 20251225
  Receipt Date: 20251225
  Transmission Date: 20260118
  Serious: Yes (Other)
  Sender: MERCK SHARP & DOHME LLC
  Company Number: JP-009507513-2363499

PATIENT
  Age: 60 Year
  Sex: Female

DRUGS (5)
  1. KEYTRUDA [Suspect]
     Active Substance: PEMBROLIZUMAB
     Indication: Triple negative breast cancer
     Dosage: LAST ADMIN DATE: 2025
     Route: 041
     Dates: start: 20251023
  2. PACLITAXEL [Concomitant]
     Active Substance: PACLITAXEL
     Dates: end: 2025
  3. PACLITAXEL [Concomitant]
     Active Substance: PACLITAXEL
     Dosage: DOSE REDUCTION
     Dates: start: 2025
  4. CARBOPLATIN [Concomitant]
     Active Substance: CARBOPLATIN
     Dates: end: 2025
  5. CARBOPLATIN [Concomitant]
     Active Substance: CARBOPLATIN
     Dosage: DOSE REDUCTION
     Dates: start: 2025

REACTIONS (2)
  - Myelosuppression [Not Recovered/Not Resolved]
  - Hypersensitivity [Recovered/Resolved]

NARRATIVE: CASE EVENT DATE: 20251023
